FAERS Safety Report 12724996 (Version 1)
Quarter: 2016Q3

REPORT INFORMATION
  Report Type: Spontaneous
  Country: US (occurrence: US)
  Receive Date: 20160908
  Receipt Date: 20160908
  Transmission Date: 20161109
  Serious: No
  Sender: FDA-Public Use
  Company Number: US-ASTRAZENECA-2016SE78941

PATIENT
  Sex: Female
  Weight: 78.9 kg

DRUGS (3)
  1. BYDUREON [Suspect]
     Active Substance: EXENATIDE
     Indication: DIABETES MELLITUS
     Route: 058
     Dates: start: 201605
  2. METFOMRNIN [Concomitant]
     Indication: DIABETES MELLITUS
     Route: 048
  3. VITAMINS [Concomitant]
     Active Substance: VITAMINS

REACTIONS (3)
  - Weight decreased [Not Recovered/Not Resolved]
  - Arterial haemorrhage [Recovered/Resolved with Sequelae]
  - Injection site mass [Recovering/Resolving]
